FAERS Safety Report 9259317 (Version 2)
Quarter: 2013Q2

REPORT INFORMATION
  Report Type: Spontaneous
  Country: DZ (occurrence: DZ)
  Receive Date: 20130427
  Receipt Date: 20130509
  Transmission Date: 20140414
  Serious: Yes (Hospitalization)
  Sender: FDA-Public Use
  Company Number: DZ-ROCHE-1216123

PATIENT
  Age: 56 Year
  Sex: Female

DRUGS (4)
  1. PEGASYS [Suspect]
     Indication: HEPATITIS C
     Route: 058
     Dates: start: 20120906
  2. PEGASYS [Suspect]
     Route: 065
  3. COPEGUS [Suspect]
     Indication: HEPATITIS C
     Route: 048
     Dates: start: 20120906
  4. COPEGUS [Suspect]
     Route: 048

REACTIONS (14)
  - Gastrointestinal neoplasm [Recovered/Resolved]
  - Conjunctival neoplasm [Not Recovered/Not Resolved]
  - Vascular purpura [Recovered/Resolved]
  - Abdominal pain upper [Recovered/Resolved]
  - Diarrhoea [Recovered/Resolved]
  - Vomiting [Recovered/Resolved]
  - Dehydration [Recovered/Resolved]
  - Pyrexia [Recovered/Resolved]
  - Abdominal pain [Recovered/Resolved]
  - Urinary tract infection [Unknown]
  - Platelet count decreased [Not Recovered/Not Resolved]
  - Haemoglobin decreased [Not Recovered/Not Resolved]
  - Gastrointestinal neoplasm [Recovered/Resolved]
  - Bicytopenia [Not Recovered/Not Resolved]
